FAERS Safety Report 22371913 (Version 2)
Quarter: 2023Q2

REPORT INFORMATION
  Report Type: Spontaneous
  Country: US (occurrence: US)
  Receive Date: 20230526
  Receipt Date: 20230629
  Transmission Date: 20230722
  Serious: No
  Sender: FDA-Public Use
  Company Number: US-PFIZER INC-PV202200042958

PATIENT
  Age: 59 Year
  Sex: Female

DRUGS (3)
  1. TRAZIMERA [Suspect]
     Active Substance: TRASTUZUMAB-QYYP
     Indication: Non-Hodgkin^s lymphoma stage II
     Dosage: 420 MG
  2. TRAZIMERA [Suspect]
     Active Substance: TRASTUZUMAB-QYYP
     Indication: Breast cancer female
  3. PERJETA [Suspect]
     Active Substance: PERTUZUMAB
     Dosage: UNK

REACTIONS (2)
  - Diarrhoea [Unknown]
  - Vomiting [Unknown]
